FAERS Safety Report 9832113 (Version 1)
Quarter: 2014Q1

REPORT INFORMATION
  Report Type: Report from Study
  Country: DE (occurrence: DE)
  Receive Date: 20140121
  Receipt Date: 20140121
  Transmission Date: 20141002
  Serious: Yes (Hospitalization)
  Sender: FDA-Public Use
  Company Number: PHHO2014DE000994

PATIENT
  Sex: 0

DRUGS (3)
  1. MYCOPHENOLIC ACID [Suspect]
     Indication: RENAL TRANSPLANT
     Dosage: 540 MG/DL, BID
     Dates: start: 20130118
  2. TACROLIMUS [Suspect]
     Indication: RENAL TRANSPLANT
     Dosage: 15 MG, BID
     Route: 048
     Dates: start: 20130118
  3. DECORTIN [Concomitant]
     Indication: RENAL TRANSPLANT
     Dosage: 5 MG/DL, UNK
     Dates: start: 20130118

REACTIONS (1)
  - Proteinuria [Recovering/Resolving]
